FAERS Safety Report 21453768 (Version 1)
Quarter: 2022Q4

REPORT INFORMATION
  Report Type: Spontaneous
  Country: US (occurrence: None)
  Receive Date: 20221007
  Receipt Date: 20221007
  Transmission Date: 20230113
  Serious: No
  Sender: FDA-Public Use
  Company Number: None

PATIENT
  Age: 92 Year
  Sex: Female

DRUGS (1)
  1. METHOTREXATE [Suspect]
     Active Substance: METHOTREXATE
     Route: 048

REACTIONS (7)
  - Oropharyngeal pain [None]
  - Mucosal inflammation [None]
  - Product communication issue [None]
  - Inappropriate schedule of product administration [None]
  - Leukopenia [None]
  - Thrombocytopenia [None]
  - Extra dose administered [None]
